FAERS Safety Report 20669497 (Version 1)
Quarter: 2022Q2

REPORT INFORMATION
  Report Type: Spontaneous
  Country: US (occurrence: None)
  Receive Date: 20220403
  Receipt Date: 20220403
  Transmission Date: 20220721
  Serious: Yes (Hospitalization)
  Sender: FDA-Public Use
  Company Number: None

PATIENT
  Age: 36 Year
  Sex: Female
  Weight: 83.7 kg

DRUGS (7)
  1. INJECTAFER [Suspect]
     Active Substance: FERRIC CARBOXYMALTOSE
     Indication: Iron deficiency
     Dosage: OTHER FREQUENCY : 2 DOSES 7 DAYS;?
     Route: 042
     Dates: start: 20220321, end: 20220328
  2. METHYLPHENIDATE [Concomitant]
     Active Substance: METHYLPHENIDATE
  3. FLUOXETINE [Concomitant]
     Active Substance: FLUOXETINE HYDROCHLORIDE
  4. CALCITRIOL [Concomitant]
     Active Substance: CALCITRIOL
  5. TUMS [Concomitant]
     Active Substance: CALCIUM CARBONATE
  6. VITAMIN D [Concomitant]
     Active Substance: VITAMIN D NOS
  7. Kphos [Concomitant]

REACTIONS (7)
  - Bone pain [None]
  - Headache [None]
  - Feeling abnormal [None]
  - Fatigue [None]
  - Dizziness [None]
  - Blood phosphorus decreased [None]
  - Renal salt-wasting syndrome [None]

NARRATIVE: CASE EVENT DATE: 20220328
